FAERS Safety Report 12841821 (Version 1)
Quarter: 2016Q4

REPORT INFORMATION
  Report Type: Spontaneous
  Country: PK (occurrence: PK)
  Receive Date: 20161012
  Receipt Date: 20161012
  Transmission Date: 20170207
  Serious: Yes (Disabling)
  Sender: FDA-Public Use
  Company Number: PK-LUNDBECK-DKLU2020829

PATIENT
  Age: 23 Year
  Sex: Male

DRUGS (1)
  1. FRISIUM [Suspect]
     Active Substance: CLOBAZAM
     Indication: EPILEPSY
     Route: 048
     Dates: end: 20160930

REACTIONS (2)
  - Polyuria [Not Recovered/Not Resolved]
  - Epilepsy [Not Recovered/Not Resolved]
